FAERS Safety Report 5703750-X (Version None)
Quarter: 2008Q2

REPORT INFORMATION
  Report Type: 
  Country: None (occurrence: None)
  Receive Date: 20080413
  Receipt Date: 20080407
  Transmission Date: 20081010
  Serious: Yes (Other)
  Sender: FDA-Public Use
  Company Number: PHEH2008US03385

PATIENT
  Age: 67 Year
  Sex: Male
  Weight: 68.027 kg

DRUGS (8)
  1. ZOMETA [Suspect]
     Indication: METASTASES TO BONE
     Dosage: 4 MG EVERY 4 WEEKS
     Route: 042
     Dates: start: 20070314, end: 20080306
  2. TAXOL [Concomitant]
     Indication: SMALL CELL LUNG CANCER METASTATIC
     Dosage: 130 MG, UNK
     Dates: start: 20070906, end: 20080313
  3. CARBOPLATIN [Concomitant]
     Indication: SMALL CELL LUNG CANCER METASTATIC
     Dosage: 130 MG, UNK
     Dates: start: 20070906, end: 20080313
  4. MAGNESIUM [Concomitant]
     Indication: SMALL CELL LUNG CANCER METASTATIC
  5. ARANESP [Concomitant]
     Indication: SMALL CELL LUNG CANCER METASTATIC
  6. NEULASTA [Concomitant]
     Indication: SMALL CELL LUNG CANCER METASTATIC
  7. CISPLATIN [Concomitant]
     Indication: SMALL CELL LUNG CANCER METASTATIC
     Dosage: 60 MG, UNK
     Dates: start: 20061213, end: 20070606
  8. ETOPOSIDE [Concomitant]
     Indication: SMALL CELL LUNG CANCER METASTATIC
     Dosage: 203 MG, UNK
     Dates: start: 20061213, end: 20070606

REACTIONS (9)
  - DISEASE PROGRESSION [None]
  - GINGIVAL INFECTION [None]
  - GINGIVAL PAIN [None]
  - GINGIVITIS [None]
  - MALIGNANT NEOPLASM PROGRESSION [None]
  - MASTICATION DISORDER [None]
  - NON-SMALL CELL LUNG CANCER [None]
  - OSTEONECROSIS [None]
  - TOOTHACHE [None]
